FAERS Safety Report 5142054-3 (Version None)
Quarter: 2006Q4

REPORT INFORMATION
  Report Type: 
  Country: None (occurrence: None)
  Receive Date: 20061102
  Receipt Date: 20061023
  Transmission Date: 20070319
  Serious: Yes (Hospitalization)
  Sender: FDA-Public Use
  Company Number: US-ROCHE-468546

PATIENT
  Age: 59 Year
  Sex: Female
  Weight: 63.5 kg

DRUGS (6)
  1. BONIVA [Suspect]
     Indication: OSTEOPOROSIS
     Route: 048
     Dates: start: 20061006, end: 20061006
  2. COUMADIN [Concomitant]
     Indication: THROMBOSIS PROPHYLAXIS
     Dosage: EVERY DAY
     Route: 048
  3. SINGULAIR [Concomitant]
     Indication: ASTHMA
     Dosage: EVERY DAY
     Route: 048
  4. DITROPAN [Concomitant]
     Route: 048
  5. TOPAMAX [Concomitant]
  6. POTASSIUM ACETATE [Concomitant]

REACTIONS (3)
  - CHEST PAIN [None]
  - OESOPHAGEAL OBSTRUCTION [None]
  - PAIN IN EXTREMITY [None]
